FAERS Safety Report 6638507-9 (Version None)
Quarter: 2010Q1

REPORT INFORMATION
  Report Type: 
  Country: None (occurrence: None)
  Receive Date: 20100317
  Receipt Date: 20100304
  Transmission Date: 20100710
  Serious: Yes (Hospitalization)
  Sender: FDA-Public Use
  Company Number: IL-ELI_LILLY_AND_COMPANY-IL201003001923

PATIENT
  Age: 62 Year
  Sex: Female
  Weight: 108 kg

DRUGS (4)
  1. BYETTA [Suspect]
     Indication: DIABETES MELLITUS
     Dosage: UNK, UNKNOWN
     Route: 058
  2. ASPIRIN [Concomitant]
     Dosage: UNK, UNKNOWN
  3. LEVEMIR [Concomitant]
     Dosage: 36 U, 2/D
  4. LEVEMIR [Concomitant]
     Dosage: 40 U, 2/D

REACTIONS (6)
  - DIAPHRAGMATIC HERNIA [None]
  - EROSIVE OESOPHAGITIS [None]
  - GASTROENTERITIS [None]
  - GLYCOSYLATED HAEMOGLOBIN INCREASED [None]
  - HAEMATEMESIS [None]
  - OFF LABEL USE [None]
